FAERS Safety Report 24107441 (Version 1)
Quarter: 2024Q3

REPORT INFORMATION
  Report Type: Spontaneous
  Country: US (occurrence: US)
  Receive Date: 20240718
  Receipt Date: 20240718
  Transmission Date: 20241017
  Serious: No
  Sender: ABBVIE
  Company Number: US-ABBVIE-5841747

PATIENT
  Age: 69 Year
  Sex: Female

DRUGS (2)
  1. LATISSE [Suspect]
     Active Substance: BIMATOPROST
     Indication: Growth of eyelashes
     Route: 061
     Dates: start: 202406, end: 202406
  2. LATISSE [Suspect]
     Active Substance: BIMATOPROST
     Route: 061
     Dates: start: 202407, end: 202407

REACTIONS (4)
  - Erythema [Recovered/Resolved]
  - Irritability [Recovered/Resolved]
  - Irritability [Recovered/Resolved]
  - Erythema [Recovered/Resolved]

NARRATIVE: CASE EVENT DATE: 20240601
